FAERS Safety Report 15985959 (Version 1)
Quarter: 2019Q1

REPORT INFORMATION
  Report Type: Spontaneous
  Country: IN (occurrence: IN)
  Receive Date: 20190220
  Receipt Date: 20190220
  Transmission Date: 20190418
  Serious: Yes (Other)
  Sender: FDA-Public Use
  Company Number: IND-IN-009507513-1902IND005468

PATIENT
  Age: 2 Year
  Sex: Male
  Weight: 10 kg

DRUGS (8)
  1. PROPOFOL. [Concomitant]
     Active Substance: PROPOFOL
     Indication: ANAESTHESIA
     Dosage: 20 MILLIGRAM
  2. ROCURONIUM BROMIDE. [Suspect]
     Active Substance: ROCURONIUM BROMIDE
     Indication: ENDOTRACHEAL INTUBATION
     Dosage: 10 MILLIGRAM
  3. ROCURONIUM BROMIDE. [Suspect]
     Active Substance: ROCURONIUM BROMIDE
     Dosage: BOLUSES AS REQUIRED
  4. FENTANYL. [Concomitant]
     Active Substance: FENTANYL
     Indication: ANAESTHESIA
     Dosage: 20 MICROGRAM
  5. FENTANYL. [Concomitant]
     Active Substance: FENTANYL
     Dosage: BOLUSES AS REQUIRED
  6. SEVOFLURANE. [Concomitant]
     Active Substance: SEVOFLURANE
     Indication: ANAESTHESIA
     Dosage: 1 %-1.5 %
  7. OXYGEN. [Concomitant]
     Active Substance: OXYGEN
     Indication: ANAESTHESIA
     Dosage: UNK
  8. NITROUS OXIDE. [Concomitant]
     Active Substance: NITROUS OXIDE
     Indication: ANAESTHESIA
     Dosage: UNK

REACTIONS (1)
  - Pneumocephalus [Recovered/Resolved]
